FAERS Safety Report 17942057 (Version 1)
Quarter: 2020Q2

REPORT INFORMATION
  Report Type: Spontaneous
  Country: US (occurrence: US)
  Receive Date: 20200624
  Receipt Date: 20200624
  Transmission Date: 20200714
  Serious: Yes (Other)
  Sender: FDA-Public Use
  Company Number: None

PATIENT
  Age: 22 Year
  Sex: Female
  Weight: 57.61 kg

DRUGS (1)
  1. BUPRENORPHINE/NALOXONE TABLET [Suspect]
     Active Substance: BUPRENORPHINE HYDROCHLORIDE\NALOXONE HYDROCHLORIDE

REACTIONS (2)
  - Oropharyngeal pain [None]
  - Stomatitis [None]

NARRATIVE: CASE EVENT DATE: 20200624
